FAERS Safety Report 10194239 (Version 3)
Quarter: 2014Q2

REPORT INFORMATION
  Report Type: Spontaneous
  Country: US (occurrence: US)
  Receive Date: 20140525
  Receipt Date: 20140627
  Transmission Date: 20141212
  Serious: Yes (Other)
  Sender: FDA-Public Use
  Company Number: US-009507513-1405USA008723

PATIENT
  Age: 28 Year
  Sex: Female
  Weight: 96.6 kg

DRUGS (2)
  1. IMPLANON [Suspect]
     Indication: CONTRACEPTION
     Dosage: 1 SINGLE ROD PLACED IN RIGHT ARM
     Route: 059
     Dates: start: 20110526
  2. IMPLANON [Suspect]
     Dosage: IMPLANT PLACED IN HER LEFT ARM
     Route: 059
     Dates: start: 2008, end: 20110526

REACTIONS (3)
  - General anaesthesia [Not Recovered/Not Resolved]
  - Medical device complication [Not Recovered/Not Resolved]
  - Incorrect drug administration duration [Unknown]
